FAERS Safety Report 13882332 (Version 1)
Quarter: 2017Q3

REPORT INFORMATION
  Report Type: Spontaneous
  Country: HU (occurrence: HU)
  Receive Date: 20170818
  Receipt Date: 20170818
  Transmission Date: 20171127
  Serious: Yes (Other)
  Sender: FDA-Public Use
  Company Number: HU-009507513-1708HUN008018

PATIENT
  Age: 74 Year
  Sex: Male

DRUGS (14)
  1. METOCLOPRAMIDE. [Concomitant]
     Active Substance: METOCLOPRAMIDE
  2. TERLIPRESSIN [Concomitant]
     Active Substance: TERLIPRESSIN
  3. ASPIRIN. [Concomitant]
     Active Substance: ASPIRIN
  4. DOBUTAMINE [Concomitant]
     Active Substance: DOBUTAMINE\DOBUTAMINE HYDROCHLORIDE
  5. CANCIDAS [Suspect]
     Active Substance: CASPOFUNGIN ACETATE
     Indication: SEPSIS
     Dosage: 70 MG, QD
     Dates: start: 20170702, end: 20170713
  6. AMIODARONE [Concomitant]
     Active Substance: AMIODARONE
  7. MEROPENEM. [Interacting]
     Active Substance: MEROPENEM
     Indication: SEPSIS
     Dosage: 500 MG, BID
     Dates: start: 20170702, end: 20170713
  8. HEPARIN [Concomitant]
     Active Substance: HEPARIN SODIUM
  9. METHYLPREDNISOLONE. [Concomitant]
     Active Substance: METHYLPREDNISOLONE
  10. MILRINONE [Concomitant]
     Active Substance: MILRINONE
  11. FUROSEMIDE. [Concomitant]
     Active Substance: FUROSEMIDE
  12. ACETAMINOPHEN. [Concomitant]
     Active Substance: ACETAMINOPHEN
  13. PANTOPRAZOLE [Concomitant]
     Active Substance: PANTOPRAZOLE
  14. DIPYRONE [Concomitant]
     Active Substance: DIPYRONE

REACTIONS (2)
  - Toxic skin eruption [Recovered/Resolved]
  - Drug interaction [Recovered/Resolved]

NARRATIVE: CASE EVENT DATE: 201707
